FAERS Safety Report 21029575 (Version 2)
Quarter: 2022Q3

REPORT INFORMATION
  Report Type: Spontaneous
  Country: JP (occurrence: JP)
  Receive Date: 20220630
  Receipt Date: 20220902
  Transmission Date: 20221027
  Serious: Yes (Hospitalization)
  Sender: FDA-Public Use
  Company Number: JP-UCBJ-CD202205976UCBPHAPROD

PATIENT
  Age: 4 Year
  Sex: Male
  Weight: 12.6 kg

DRUGS (1)
  1. VIMPAT [Suspect]
     Active Substance: LACOSAMIDE
     Indication: Epilepsy
     Dosage: 12 MILLIGRAM, 2X/DAY (BID)
     Route: 048
     Dates: start: 20220513, end: 20220517

REACTIONS (2)
  - Rash [Recovered/Resolved]
  - Human rhinovirus test positive [Unknown]

NARRATIVE: CASE EVENT DATE: 20220518
